FAERS Safety Report 12519085 (Version 2)
Quarter: 2016Q3

REPORT INFORMATION
  Report Type: Report from Study
  Country: US (occurrence: US)
  Receive Date: 20160630
  Receipt Date: 20160726
  Transmission Date: 20161109
  Serious: Yes (Death, Hospitalization, Other)
  Sender: FDA-Public Use
  Company Number: US-ACTELION-A-NJ2016-138281

PATIENT
  Age: 61 Year
  Sex: Female

DRUGS (1)
  1. OPSUMIT [Suspect]
     Active Substance: MACITENTAN
     Indication: PULMONARY ARTERIAL HYPERTENSION
     Dosage: 10 MG, QD
     Route: 048
     Dates: start: 20140602

REACTIONS (9)
  - Vomiting [Unknown]
  - Diarrhoea [Unknown]
  - Mechanical ventilation [Unknown]
  - Arthropathy [Unknown]
  - Respiratory disorder [Unknown]
  - Urinary tract infection [Unknown]
  - Death [Fatal]
  - Dehydration [Unknown]
  - Bladder catheterisation [Unknown]
